FAERS Safety Report 5424472-9 (Version None)
Quarter: 2007Q3

REPORT INFORMATION
  Report Type: 
  Country: None (occurrence: None)
  Receive Date: 20070822
  Receipt Date: 20070813
  Transmission Date: 20080115
  Serious: Yes (Life-Threatening)
  Sender: FDA-Public Use
  Company Number: GXKR2007GB06942

PATIENT
  Age: 79 Year
  Sex: Male
  Weight: 72 kg

DRUGS (5)
  1. SIMVASTATIN [Suspect]
     Indication: BLOOD CHOLESTEROL INCREASED
     Dosage: 20 MG, ORAL
     Route: 048
     Dates: start: 20060811, end: 20070114
  2. BECLOMETHASONE DIPROPIONATE [Concomitant]
  3. NIFEDIPINE [Concomitant]
  4. SALBUTAMOL (SALBUTAMOL) [Concomitant]
  5. LISINOPRIL [Concomitant]

REACTIONS (3)
  - ASTHMA [None]
  - CONDITION AGGRAVATED [None]
  - MUSCLE SPASMS [None]
